FAERS Safety Report 26175581 (Version 1)
Quarter: 2025Q4

REPORT INFORMATION
  Report Type: Report from Study
  Country: EU (occurrence: EU)
  Receive Date: 20251218
  Receipt Date: 20251218
  Transmission Date: 20260117
  Serious: Yes (Other)
  Sender: PFIZER
  Company Number: EU-PFIZER INC-PV202500147696

PATIENT

DRUGS (2)
  1. DILTIAZEM HYDROCHLORIDE [Interacting]
     Active Substance: DILTIAZEM HYDROCHLORIDE
     Dosage: UNK
  2. AMIODARONE [Interacting]
     Active Substance: AMIODARONE
     Dosage: UNK

REACTIONS (2)
  - Drug interaction [Unknown]
  - Bradycardia [Unknown]
